FAERS Safety Report 8895381 (Version 1)
Quarter: 2012Q4

REPORT INFORMATION
  Report Type: 
  Country: US (occurrence: US)
  Receive Date: 20121108
  Receipt Date: 20121108
  Transmission Date: 20130627
  Serious: No
  Sender: FDA-Public Use
  Company Number: US-ASTRAZENECA-2012SE81119

PATIENT
  Age: 63 Year
  Sex: Female

DRUGS (10)
  1. CRESTOR [Suspect]
     Route: 048
  2. LISINOPRIL [Suspect]
     Route: 048
  3. METFORMIN [Concomitant]
  4. HCTZ [Concomitant]
  5. BENICAR [Concomitant]
  6. ASA [Concomitant]
     Route: 048
  7. VITAMIN D [Concomitant]
  8. VITAMIN C [Concomitant]
  9. DITROPAN [Concomitant]
  10. CALCIUM [Concomitant]

REACTIONS (2)
  - Drug hypersensitivity [Unknown]
  - Cough [Unknown]
